FAERS Safety Report 4806949-X (Version None)
Quarter: 2005Q4

REPORT INFORMATION
  Report Type: 
  Country: None (occurrence: None)
  Receive Date: 20051019
  Receipt Date: 20051004
  Transmission Date: 20060501
  Serious: Yes (Hospitalization)
  Sender: FDA-Public Use
  Company Number: JP_050907545

PATIENT
  Age: 36 Year
  Sex: Male
  Weight: 64 kg

DRUGS (1)
  1. ZYPREXA [Suspect]
     Indication: SCHIZOPHRENIA
     Dosage: 2.5 MG/1 DAY
     Dates: start: 20040727, end: 20041108

REACTIONS (1)
  - NO ADVERSE DRUG EFFECT [None]
